FAERS Safety Report 16240615 (Version 2)
Quarter: 2019Q2

REPORT INFORMATION
  Report Type: Report from Study
  Country: DE (occurrence: DE)
  Receive Date: 20190425
  Receipt Date: 20190621
  Transmission Date: 20190711
  Serious: Yes (Hospitalization, Other)
  Sender: FDA-Public Use
  Company Number: DE-MYLANLABS-2019M1037817

PATIENT
  Age: 44 Year
  Sex: Male
  Weight: 85 kg

DRUGS (23)
  1. NORVIR [Suspect]
     Active Substance: RITONAVIR
     Indication: HIV INFECTION
     Dosage: 100 MG, QD
     Route: 048
     Dates: start: 20111013, end: 20120313
  2. RIBAVIRIN. [Suspect]
     Active Substance: RIBAVIRIN
     Dosage: 800 MILLIGRAM, QD
     Route: 065
     Dates: start: 20120301, end: 20121012
  3. VALDOXAN [Concomitant]
     Active Substance: AGOMELATINE
     Indication: PRODUCT USED FOR UNKNOWN INDICATION
     Dosage: 25 MG
     Route: 065
     Dates: start: 20160208
  4. PEGASYS [Suspect]
     Active Substance: PEGINTERFERON ALFA-2A
     Indication: CHRONIC HEPATITIS C
     Dosage: 180 UG, Q1WK
     Route: 058
     Dates: start: 20111111, end: 20111208
  5. INCIVO [Suspect]
     Active Substance: TELAPREVIR
     Indication: CHRONIC HEPATITIS C
     Dosage: 2250 MG/D, TID (6750 MG ,QD)
     Route: 048
     Dates: start: 20111111, end: 20120203
  6. ALPRAZOLAM. [Concomitant]
     Active Substance: ALPRAZOLAM
     Indication: PRODUCT USED FOR UNKNOWN INDICATION
     Dosage: 0.5 MG
     Route: 065
     Dates: start: 20141016
  7. COPEGUS [Concomitant]
     Active Substance: RIBAVIRIN
     Dosage: 800 MG/D
     Route: 065
     Dates: start: 20120301, end: 20121012
  8. SERTRALIN 1 A PHARMA [Concomitant]
     Indication: PRODUCT USED FOR UNKNOWN INDICATION
     Dosage: 50 MG
     Route: 065
     Dates: start: 20140210, end: 20151102
  9. PEGASYS [Suspect]
     Active Substance: PEGINTERFERON ALFA-2A
     Dosage: 135 UG, Q1WK
     Route: 065
     Dates: start: 20120120, end: 20121012
  10. DULOXETIN 1A PHARMA [Concomitant]
     Active Substance: DULOXETINE HYDROCHLORIDE
     Indication: PRODUCT USED FOR UNKNOWN INDICATION
     Dosage: 30 MG
     Route: 065
     Dates: start: 20151103
  11. OMEP                               /00661201/ [Concomitant]
     Active Substance: OMEPRAZOLE
     Indication: PRODUCT USED FOR UNKNOWN INDICATION
     Dosage: 40 MG
     Route: 065
     Dates: start: 20100519
  12. EMTRICITABINE/TENOFOVIR DISOPROXIL FUMARATE [Suspect]
     Active Substance: EMTRICITABINE\TENOFOVIR DISOPROXIL FUMARATE
     Indication: HIV INFECTION
     Dosage: 245 MG, QD
     Route: 048
     Dates: start: 20111013, end: 20120313
  13. PEGASYS [Suspect]
     Active Substance: PEGINTERFERON ALFA-2A
     Dosage: 90 UG, Q1WK
     Route: 065
     Dates: start: 20111223, end: 20120119
  14. COPEGUS [Concomitant]
     Active Substance: RIBAVIRIN
     Indication: CHRONIC HEPATITIS C
     Dosage: 1200 MG/D
     Route: 065
     Dates: start: 20111111, end: 20120229
  15. RAMIPRIL. [Concomitant]
     Active Substance: RAMIPRIL
     Indication: CARDIOVASCULAR DISORDER
     Dosage: 5 MG
     Route: 065
     Dates: start: 20171005, end: 20180402
  16. CITALOPRAM [Concomitant]
     Active Substance: CITALOPRAM HYDROBROMIDE
     Indication: PRODUCT USED FOR UNKNOWN INDICATION
     Dosage: 20 MG
     Route: 065
     Dates: start: 20090825, end: 20140209
  17. ZOLPIDEM [Concomitant]
     Active Substance: ZOLPIDEM\ZOLPIDEM TARTRATE
     Indication: PRODUCT USED FOR UNKNOWN INDICATION
     Dosage: 10 MG
     Route: 065
     Dates: start: 20110112
  18. TONOTEC [Concomitant]
     Active Substance: AMLODIPINE\RAMIPRIL
     Indication: CARDIOVASCULAR DISORDER
     Dosage: 5/5 MG
     Route: 065
     Dates: start: 20180403
  19. FERRO-SANOL DUODENAL [Concomitant]
     Active Substance: FERROUS GLYCINE SULFATE
     Indication: PRODUCT USED FOR UNKNOWN INDICATION
     Dosage: 200 MG
     Route: 065
     Dates: start: 20121203, end: 20130215
  20. PROPRANOLOL [Concomitant]
     Active Substance: PROPRANOLOL HYDROCHLORIDE
     Indication: PRODUCT USED FOR UNKNOWN INDICATION
     Dosage: 30 MG
     Route: 065
     Dates: start: 20130619
  21. PEGASYS [Suspect]
     Active Substance: PEGINTERFERON ALFA-2A
     Dosage: 135 UG, Q1WK
     Route: 065
     Dates: start: 20111209, end: 20111222
  22. REYATAZ [Suspect]
     Active Substance: ATAZANAVIR SULFATE
     Indication: HIV INFECTION
     Dosage: 300 MG, QD
     Route: 048
     Dates: start: 20111013, end: 20120313
  23. RIBAVIRIN. [Suspect]
     Active Substance: RIBAVIRIN
     Indication: CHRONIC HEPATITIS C
     Dosage: 1200 MILLIGRAM, QD
     Route: 065
     Dates: start: 20111111, end: 20120229

REACTIONS (13)
  - Haemoglobin decreased [Unknown]
  - Epistaxis [Unknown]
  - Depressed mood [Unknown]
  - Dyspnoea [Recovered/Resolved]
  - Disturbance in attention [Unknown]
  - Skin disorder [Unknown]
  - Hypertension [Recovering/Resolving]
  - Fatigue [Unknown]
  - Acute stress disorder [Recovering/Resolving]
  - Nausea [Unknown]
  - Pneumonia [Not Recovered/Not Resolved]
  - Thrombocytopenia [Unknown]
  - Iron deficiency anaemia [Unknown]

NARRATIVE: CASE EVENT DATE: 20111201
